FAERS Safety Report 11327626 (Version 2)
Quarter: 2015Q3

REPORT INFORMATION
  Report Type: Spontaneous
  Country: CA (occurrence: CA)
  Receive Date: 20150731
  Receipt Date: 20150921
  Transmission Date: 20151125
  Serious: Yes (Other)
  Sender: FDA-Public Use
  Company Number: CA-SA-2015SA110736

PATIENT
  Age: 41 Year
  Sex: Female

DRUGS (10)
  1. CLONAZEPAM. [Concomitant]
     Active Substance: CLONAZEPAM
     Route: 065
  2. VENLAFAXINE [Concomitant]
     Active Substance: VENLAFAXINE HYDROCHLORIDE
  3. TRASTUZUMAB [Suspect]
     Active Substance: TRASTUZUMAB
     Indication: BREAST CANCER METASTATIC
     Dosage: POWDER FOR SOLUTION INTRAVENOUS
     Route: 042
  4. OXYCODONE [Concomitant]
     Active Substance: OXYCODONE
  5. LYRICA [Concomitant]
     Active Substance: PREGABALIN
     Route: 065
  6. NEULASTA [Concomitant]
     Active Substance: PEGFILGRASTIM
     Dosage: FORM: SOLUTION SUBCUTANEOUS
     Route: 065
  7. PERJETA [Suspect]
     Active Substance: PERTUZUMAB
     Indication: BREAST CANCER METASTATIC
     Dosage: CONCENTRATE SOLUTION, SOLUTION INTRAVENOUS
     Route: 042
  8. TAXOTERE [Suspect]
     Active Substance: DOCETAXEL
     Indication: BREAST CANCER METASTATIC
     Dosage: SOLUTION?INTRAVENOUS
     Route: 042
  9. TAXOTERE [Suspect]
     Active Substance: DOCETAXEL
     Indication: BREAST CANCER METASTATIC
     Dosage: SOLUTION?INTRAVENOUS
     Route: 042
  10. PANTOPRAZOLE SODIUM. [Concomitant]
     Active Substance: PANTOPRAZOLE SODIUM
     Route: 065

REACTIONS (29)
  - Rectal fissure [Unknown]
  - Paraesthesia [Unknown]
  - Peripheral sensory neuropathy [Unknown]
  - Weight decreased [Unknown]
  - Weight increased [Unknown]
  - Urinary tract infection [Unknown]
  - Myalgia [Unknown]
  - Rash [Unknown]
  - Rhinorrhoea [Unknown]
  - Fatigue [Unknown]
  - Balance disorder [Unknown]
  - Hyperhidrosis [Unknown]
  - Hot flush [Unknown]
  - Hypersensitivity [Unknown]
  - Peripheral motor neuropathy [Unknown]
  - Vaginal infection [Unknown]
  - Dyspnoea [Unknown]
  - Epistaxis [Unknown]
  - Oedema [Unknown]
  - Burning sensation [Unknown]
  - Hypoaesthesia [Unknown]
  - Swelling [Unknown]
  - Nausea [Unknown]
  - Oedema peripheral [Unknown]
  - Nasal dryness [Unknown]
  - Constipation [Unknown]
  - Dry skin [Unknown]
  - Pruritus [Unknown]
  - Respiratory tract infection [Unknown]
